FAERS Safety Report 17975599 (Version 4)
Quarter: 2020Q3

REPORT INFORMATION
  Report Type: Spontaneous
  Country: US (occurrence: US)
  Receive Date: 20200702
  Receipt Date: 20200904
  Transmission Date: 20201103
  Serious: Yes (Hospitalization)
  Sender: FDA-Public Use
  Company Number: US-SEATTLE GENETICS-2020SGN01948

PATIENT
  Sex: Female

DRUGS (1)
  1. TUKYSA [Suspect]
     Active Substance: TUCATINIB
     Indication: BREAST CANCER FEMALE
     Dosage: UNK, BID

REACTIONS (15)
  - Dyspnoea [Unknown]
  - Vomiting [Unknown]
  - Lung opacity [Unknown]
  - Pneumonia [Unknown]
  - Skin fissures [Unknown]
  - Nausea [Unknown]
  - Myalgia [Unknown]
  - Arthralgia [Unknown]
  - Diarrhoea [Recovered/Resolved]
  - Urinary tract infection [Unknown]
  - Peripheral swelling [Unknown]
  - Fatigue [Unknown]
  - Pain [Unknown]
  - Constipation [Unknown]
  - Insomnia [Unknown]
